FAERS Safety Report 4558353-X (Version None)
Quarter: 2005Q1

REPORT INFORMATION
  Report Type: 
  Country: None (occurrence: None)
  Receive Date: 20050103
  Receipt Date: 20041012
  Transmission Date: 20050727
  Serious: Yes (Other)
  Sender: FDA-Public Use
  Company Number: 2004UW21329

PATIENT
  Age: 69 Year
  Sex: Female
  Weight: 22.679 kg

DRUGS (5)
  1. CRESTOR [Suspect]
     Indication: HYPERCHOLESTEROLAEMIA
     Dosage: 10 MG PO
     Route: 048
     Dates: start: 20041009
  2. ZOLOFT [Concomitant]
  3. AVANDIA [Concomitant]
  4. COZAAR [Concomitant]
  5. TOPROL-XL [Concomitant]

REACTIONS (2)
  - EYE SWELLING [None]
  - OCULAR HYPERAEMIA [None]
